FAERS Safety Report 7214693-7 (Version None)
Quarter: 2011Q1

REPORT INFORMATION
  Report Type: 
  Country: None (occurrence: None)
  Receive Date: 20110107
  Receipt Date: 20091117
  Transmission Date: 20110831
  Serious: No
  Sender: FDA-Public Use
  Company Number: A0817454A

PATIENT
  Sex: Male

DRUGS (3)
  1. DIGOXIN [Concomitant]
  2. LOVAZA [Suspect]
     Indication: PROPHYLAXIS
     Dosage: 2CAP TWICE PER DAY
     Route: 048
     Dates: end: 20091116
  3. MULTI-VITAMIN [Concomitant]

REACTIONS (2)
  - ABDOMINAL PAIN UPPER [None]
  - FLATULENCE [None]
